FAERS Safety Report 11306606 (Version 1)
Quarter: 2015Q3

REPORT INFORMATION
  Report Type: Spontaneous
  Country: US (occurrence: US)
  Receive Date: 20150723
  Receipt Date: 20150723
  Transmission Date: 20151125
  Serious: Yes (Other)
  Sender: FDA-Public Use
  Company Number: US-BAYER-2015-383814

PATIENT
  Sex: Female

DRUGS (2)
  1. BAYER LOW DOSE [Suspect]
     Active Substance: ASPIRIN
     Route: 048
  2. IRON [Concomitant]
     Active Substance: IRON

REACTIONS (2)
  - Faeces discoloured [Unknown]
  - Haematochezia [Unknown]
